FAERS Safety Report 9381228 (Version 3)
Quarter: 2013Q3

REPORT INFORMATION
  Report Type: Spontaneous
  Country: IT (occurrence: IT)
  Receive Date: 20130703
  Receipt Date: 20130810
  Transmission Date: 20140515
  Serious: Yes (Other)
  Sender: FDA-Public Use
  Company Number: IT-ROCHE-1244439

PATIENT
  Age: 90 Year
  Sex: Female

DRUGS (7)
  1. MIRCERA [Suspect]
     Indication: NEPHROGENIC ANAEMIA
     Dosage: 2 DF EVERY 30 DAYS
     Route: 058
     Dates: start: 20110406
  2. MIRCERA [Suspect]
     Dosage: 2 DF EVERY 45 DAYS
     Route: 058
     Dates: start: 20130513
  3. CORDARONE [Concomitant]
     Route: 048
  4. EUTIROX [Concomitant]
     Route: 048
  5. FUROSEMIDE [Concomitant]
  6. LOSARTAN [Concomitant]
  7. PERIDON (ITALY) [Concomitant]
     Route: 065

REACTIONS (1)
  - Optic ischaemic neuropathy [Not Recovered/Not Resolved]
